FAERS Safety Report 9409509 (Version 1)
Quarter: 2013Q3

REPORT INFORMATION
  Report Type: Spontaneous
  Country: US (occurrence: US)
  Receive Date: 20130719
  Receipt Date: 20130719
  Transmission Date: 20140515
  Serious: Yes (Death)
  Sender: FDA-Public Use
  Company Number: US-PFIZER INC-2013208228

PATIENT
  Age: 53 Year
  Sex: Female

DRUGS (4)
  1. AROMASIN [Suspect]
     Dosage: UNK
     Dates: end: 201306
  2. ATIVAN [Suspect]
     Dosage: UNK
  3. MORPHINE SULFATE [Suspect]
     Dosage: UNK
  4. ABH CREAM [Suspect]
     Dosage: UNK

REACTIONS (1)
  - Death [Fatal]
